FAERS Safety Report 21573805 (Version 1)
Quarter: 2022Q4

REPORT INFORMATION
  Report Type: Spontaneous
  Country: US (occurrence: None)
  Receive Date: 20221108
  Receipt Date: 20221108
  Transmission Date: 20230112
  Serious: Yes (Death)
  Sender: FDA-Public Use
  Company Number: None

PATIENT
  Sex: Female

DRUGS (4)
  1. AMBRISENTAN [Suspect]
     Active Substance: AMBRISENTAN
     Indication: Cor pulmonale chronic
     Route: 048
     Dates: start: 20201202
  2. ASPIRIN LOW TAB [Concomitant]
  3. CLOPIDOGREL TAB [Concomitant]
  4. TADALAFIL [Concomitant]

REACTIONS (1)
  - Death [None]
